FAERS Safety Report 11107450 (Version 2)
Quarter: 2015Q2

REPORT INFORMATION
  Report Type: Spontaneous
  Country: US (occurrence: US)
  Receive Date: 20150512
  Receipt Date: 20150624
  Transmission Date: 20150821
  Serious: Yes (Death)
  Sender: FDA-Public Use
  Company Number: US-PFIZER INC-2015153920

PATIENT
  Age: 48 Year
  Sex: Female

DRUGS (4)
  1. ADVIL [Suspect]
     Active Substance: IBUPROFEN
     Indication: ARTHRITIS
  2. ADVIL [Suspect]
     Active Substance: IBUPROFEN
     Indication: PYREXIA
     Dosage: 4 DF (2 EVERY MORNING AND 2 EVERY NIGHT)
  3. ADVIL [Suspect]
     Active Substance: IBUPROFEN
     Indication: PAIN
  4. ADVIL [Suspect]
     Active Substance: IBUPROFEN
     Indication: TOOTHACHE

REACTIONS (1)
  - Death [Fatal]

NARRATIVE: CASE EVENT DATE: 1985
